FAERS Safety Report 7619548-1 (Version None)
Quarter: 2011Q3

REPORT INFORMATION
  Report Type: 
  Country: None (occurrence: None)
  Receive Date: 20110719
  Receipt Date: 20110712
  Transmission Date: 20111222
  Serious: Yes (Death)
  Sender: FDA-Public Use
  Company Number: DE-JNJFOC-20110705044

PATIENT
  Sex: Male

DRUGS (3)
  1. LORAZEPAM [Suspect]
     Indication: ANXIETY
     Dosage: 50 TO 75 UG/HR
     Route: 065
  2. FENTANYL-100 [Suspect]
     Indication: PAIN
     Dosage: 50 TO 75 UG/HR
     Route: 062
  3. MORPHINE [Suspect]
     Indication: BREAKTHROUGH PAIN
     Dosage: 50 TO 75 UG/HR
     Route: 048

REACTIONS (1)
  - ACCIDENT [None]
